FAERS Safety Report 16292192 (Version 3)
Quarter: 2019Q2

REPORT INFORMATION
  Report Type: Spontaneous
  Country: DK (occurrence: DK)
  Receive Date: 20190509
  Receipt Date: 20190516
  Transmission Date: 20190711
  Serious: Yes (Hospitalization, Disabling)
  Sender: FDA-Public Use
  Company Number: DK-ALLERGAN-1918916US

PATIENT
  Sex: Male
  Weight: 74 kg

DRUGS (3)
  1. INFLIXIMAB [Suspect]
     Active Substance: INFLIXIMAB
     Indication: COLITIS ULCERATIVE
     Dosage: 800 MG
     Route: 065
     Dates: start: 20181116, end: 20190208
  2. ASACOL [Suspect]
     Active Substance: MESALAMINE
     Indication: COLITIS ULCERATIVE
     Dosage: 3200 MG, QD
     Route: 048
     Dates: start: 201509
  3. ASACOL [Suspect]
     Active Substance: MESALAMINE
     Dosage: 800 MG, QD
     Route: 048
     Dates: start: 201509

REACTIONS (6)
  - Dyspnoea [Recovering/Resolving]
  - Pneumonia [Not Recovered/Not Resolved]
  - Endotracheal intubation [Recovered/Resolved]
  - C-reactive protein increased [Recovering/Resolving]
  - Pulmonary fibrosis [Not Recovered/Not Resolved]
  - Interstitial lung disease [Not Recovered/Not Resolved]

NARRATIVE: CASE EVENT DATE: 201903
